FAERS Safety Report 19440565 (Version 1)
Quarter: 2021Q2

REPORT INFORMATION
  Report Type: Spontaneous
  Country: US (occurrence: US)
  Receive Date: 20210621
  Receipt Date: 20210621
  Transmission Date: 20210717
  Serious: No
  Sender: FDA-Public Use
  Company Number: US-RECORDATI RARE DISEASES INC.-2020005247

PATIENT

DRUGS (1)
  1. PEGANONE [Suspect]
     Active Substance: ETHOTOIN
     Indication: SEIZURE
     Dosage: UNKNOWN
     Route: 065

REACTIONS (2)
  - Therapy interrupted [Unknown]
  - Product availability issue [Unknown]
